FAERS Safety Report 5419207-X (Version None)
Quarter: 2007Q3

REPORT INFORMATION
  Report Type: 
  Country: None (occurrence: None)
  Receive Date: 20070820
  Receipt Date: 20070816
  Transmission Date: 20080115
  Serious: Yes (Hospitalization)
  Sender: FDA-Public Use
  Company Number: BR-BOEHRINGER INGELHEIM PHARMACEUTICALS, INC.-2007-BP-19285BR

PATIENT
  Age: 1 Month
  Sex: Male

DRUGS (1)
  1. ATROVENT [Suspect]
     Indication: NEONATAL RESPIRATORY DISTRESS SYNDROME
     Route: 055

REACTIONS (1)
  - ARRHYTHMIA [None]
